FAERS Safety Report 10310501 (Version 2)
Quarter: 2014Q3

REPORT INFORMATION
  Report Type: Report from Study
  Country: CA (occurrence: CA)
  Receive Date: 20140717
  Receipt Date: 20140721
  Transmission Date: 20150326
  Serious: Yes (Other)
  Sender: FDA-Public Use
  Company Number: CA-JNJFOC-20140708594

PATIENT
  Age: 28 Year
  Sex: Male
  Weight: 74.6 kg

DRUGS (4)
  1. REMICADE [Suspect]
     Active Substance: INFLIXIMAB
     Indication: CROHN^S DISEASE
     Route: 042
     Dates: start: 2014
  2. REMICADE [Suspect]
     Active Substance: INFLIXIMAB
     Indication: CROHN^S DISEASE
     Dosage: POSSIBLY 2ND INFUSION
     Route: 042
     Dates: start: 20140711
  3. PREDNISONE. [Concomitant]
     Active Substance: PREDNISONE
     Route: 065
  4. EPIVAL [Concomitant]
     Active Substance: DIVALPROEX SODIUM
     Route: 065

REACTIONS (12)
  - Feeling cold [Unknown]
  - Mouth swelling [Recovering/Resolving]
  - Vomiting [Unknown]
  - Urticaria [Unknown]
  - Chills [Recovered/Resolved]
  - Erythema [Unknown]
  - Abdominal pain [Unknown]
  - Swelling face [Recovering/Resolving]
  - Anxiety [Unknown]
  - Infusion related reaction [Unknown]
  - Dyspnoea [Recovered/Resolved]
  - Tachycardia [Unknown]

NARRATIVE: CASE EVENT DATE: 20140711
